FAERS Safety Report 6370523-7 (Version None)
Quarter: 2009Q3

REPORT INFORMATION
  Report Type: 
  Country: None (occurrence: None)
  Receive Date: 20090923
  Receipt Date: 20090915
  Transmission Date: 20100115
  Serious: Yes (Hospitalization)
  Sender: FDA-Public Use
  Company Number: A0802910A

PATIENT
  Age: 62 Year
  Sex: Male

DRUGS (6)
  1. AVANDIA [Suspect]
     Dosage: 4MG PER DAY
     Route: 048
     Dates: start: 19990101, end: 20010301
  2. LIPITOR [Concomitant]
  3. ZANTAC [Concomitant]
  4. GLYBURIDE [Concomitant]
  5. ZESTRIL [Concomitant]
  6. GLUCOPHAGE [Concomitant]

REACTIONS (1)
  - MYOCARDIAL INFARCTION [None]
